FAERS Safety Report 22228086 (Version 1)
Quarter: 2023Q2

REPORT INFORMATION
  Report Type: Report from Study
  Country: JP (occurrence: JP)
  Receive Date: 20230419
  Receipt Date: 20230419
  Transmission Date: 20230722
  Serious: Yes (Death, Other)
  Sender: FDA-Public Use
  Company Number: JP-PFIZER INC-202300159649

PATIENT
  Age: 5 Decade
  Sex: Female

DRUGS (1)
  1. TRIAZOLAM [Suspect]
     Active Substance: TRIAZOLAM
     Dosage: UNK

REACTIONS (1)
  - Toxicity to various agents [Fatal]
